FAERS Safety Report 10053647 (Version 3)
Quarter: 2014Q2

REPORT INFORMATION
  Report Type: Spontaneous
  Country: US (occurrence: US)
  Receive Date: 20140402
  Receipt Date: 20140505
  Transmission Date: 20141212
  Serious: No
  Sender: FDA-Public Use
  Company Number: US-PFIZER INC-2014092732

PATIENT
  Age: 73 Year
  Sex: Female
  Weight: 58.96 kg

DRUGS (1)
  1. XELJANZ [Suspect]
     Indication: ARTHRITIS
     Dosage: 5 MG, 2X/DAY
     Dates: end: 20140428

REACTIONS (11)
  - Fatigue [Unknown]
  - Abdominal pain upper [Unknown]
  - Sweat gland disorder [Unknown]
  - Chills [Unknown]
  - Headache [Unknown]
  - Pain in extremity [Unknown]
  - Burning sensation [Unknown]
  - Musculoskeletal pain [Unknown]
  - Activities of daily living impaired [Unknown]
  - Insomnia [Unknown]
  - Dyspnoea [Unknown]
